FAERS Safety Report 24796599 (Version 3)
Quarter: 2025Q1

REPORT INFORMATION
  Report Type: Spontaneous
  Country: FR (occurrence: FR)
  Receive Date: 20250101
  Receipt Date: 20250131
  Transmission Date: 20250408
  Serious: Yes (Other)
  Sender: SANOFI AVENTIS
  Company Number: None

PATIENT
  Age: 50 Year
  Sex: Male

DRUGS (2)
  1. DUPIXENT [Suspect]
     Active Substance: DUPILUMAB
     Indication: Neurodermatitis
     Dosage: 300 MG, QOW
     Route: 058
     Dates: start: 20231211, end: 20241010
  2. ROPINIROLE [Concomitant]
     Active Substance: ROPINIROLE
     Indication: Restless legs syndrome
     Route: 048
     Dates: start: 20200101

REACTIONS (4)
  - Cutaneous T-cell lymphoma [Recovering/Resolving]
  - Eczema [Recovering/Resolving]
  - Rash [Recovering/Resolving]
  - Skin plaque [Recovering/Resolving]

NARRATIVE: CASE EVENT DATE: 20240801
